FAERS Safety Report 25169372 (Version 1)
Quarter: 2025Q2

REPORT INFORMATION
  Report Type: Spontaneous
  Country: US (occurrence: US)
  Receive Date: 20250407
  Receipt Date: 20250407
  Transmission Date: 20250717
  Serious: Yes (Hospitalization)
  Sender: ANI
  Company Number: US-ANIPHARMA-2025-US-015314

PATIENT
  Age: 74 Year
  Sex: Male

DRUGS (16)
  1. CORTICOTROPIN [Suspect]
     Active Substance: CORTICOTROPIN
     Indication: Nephrotic syndrome
     Route: 058
     Dates: start: 202501
  2. ATORVASTATIN [Concomitant]
     Active Substance: ATORVASTATIN
  3. ARICEPT [Concomitant]
     Active Substance: DONEPEZIL HYDROCHLORIDE
  4. NAMENDA [Concomitant]
     Active Substance: MEMANTINE HYDROCHLORIDE
  5. ZETIA [Concomitant]
     Active Substance: EZETIMIBE
  6. FOLIC ACID [Concomitant]
     Active Substance: FOLIC ACID
  7. NIFEDIPINE [Concomitant]
     Active Substance: NIFEDIPINE
  8. FUROSEMIDE [Concomitant]
     Active Substance: FUROSEMIDE
  9. ASPIRIN [Concomitant]
     Active Substance: ASPIRIN
  10. TORSEMIDE [Concomitant]
     Active Substance: TORSEMIDE
  11. CARVEDILOL [Suspect]
     Active Substance: CARVEDILOL
     Dates: start: 20250319
  12. XARELTO [Concomitant]
     Active Substance: RIVAROXABAN
  13. LOSARTAN [Concomitant]
     Active Substance: LOSARTAN
  14. NIFEDIPINE [Concomitant]
     Active Substance: NIFEDIPINE
  15. PROTONIX [Concomitant]
     Active Substance: PANTOPRAZOLE SODIUM
  16. AMLODIPINE BESYLATE\OLMESARTAN MEDOXOMIL [Concomitant]
     Active Substance: AMLODIPINE BESYLATE\OLMESARTAN MEDOXOMIL

REACTIONS (2)
  - Hypotension [Unknown]
  - Contraindicated product administered [Not Recovered/Not Resolved]

NARRATIVE: CASE EVENT DATE: 20250101
